FAERS Safety Report 5297811-X (Version None)
Quarter: 2007Q2

REPORT INFORMATION
  Report Type: 
  Country: None (occurrence: None)
  Receive Date: 20070416
  Receipt Date: 20070416
  Transmission Date: 20071010
  Serious: Yes (Hospitalization)
  Sender: FDA-Public Use
  Company Number: None

PATIENT
  Age: 33 Year
  Sex: Female
  Weight: 68.0396 kg

DRUGS (2)
  1. CARBOPLATIN WEEKLY [Suspect]
     Indication: BREAST CANCER
     Dosage: IV WEEKLY
     Route: 042
     Dates: start: 20070222
  2. ERBITUX [Suspect]
     Indication: BREAST CANCER
     Dosage: IV WKLY
     Route: 042
     Dates: start: 20070125

REACTIONS (2)
  - ANAEMIA [None]
  - HYPOTENSION [None]
